FAERS Safety Report 13098009 (Version 2)
Quarter: 2017Q1

REPORT INFORMATION
  Report Type: Spontaneous
  Country: US (occurrence: US)
  Receive Date: 20170109
  Receipt Date: 20170130
  Transmission Date: 20170428
  Serious: No
  Sender: FDA-Public Use
  Company Number: US-GLAXOSMITHKLINE-US2017001406

PATIENT
  Age: 57 Year
  Sex: Female

DRUGS (11)
  1. PRO-AIR (ALBUTEROL SULFATE) [Concomitant]
  2. PHENTERMINE. [Concomitant]
     Active Substance: PHENTERMINE
  3. PROVENTIL [Concomitant]
     Active Substance: ALBUTEROL
  4. GABAPENTINE [Concomitant]
     Active Substance: GABAPENTIN
  5. CLONAZEPAM. [Concomitant]
     Active Substance: CLONAZEPAM
  6. LAMOTRIGINE. [Concomitant]
     Active Substance: LAMOTRIGINE
  7. ADVAIR DISKUS [Suspect]
     Active Substance: FLUTICASONE PROPIONATE\SALMETEROL XINAFOATE
     Indication: ASTHMA
     Dosage: 1 PUFF(S), BID
     Route: 055
     Dates: start: 2007
  8. JARDIANCE [Concomitant]
     Active Substance: EMPAGLIFLOZIN
  9. SEROQUEL [Concomitant]
     Active Substance: QUETIAPINE FUMARATE
  10. FLUTICASONE NASAL SPRAY [Concomitant]
     Active Substance: FLUTICASONE
     Dosage: UNK
  11. ZOLPIDEM [Concomitant]
     Active Substance: ZOLPIDEM\ZOLPIDEM TARTRATE

REACTIONS (2)
  - Product quality issue [Unknown]
  - Dyspnoea [Recovered/Resolved]

NARRATIVE: CASE EVENT DATE: 201601
